FAERS Safety Report 8890841 (Version 1)
Quarter: 2012Q4

REPORT INFORMATION
  Report Type: 
  Country: US (occurrence: US)
  Receive Date: 20121107
  Receipt Date: 20121107
  Transmission Date: 20130627
  Serious: Yes (Hospitalization)
  Sender: FDA-Public Use
  Company Number: US-ROCHE-1141127

PATIENT
  Age: 67 Year
  Sex: Female

DRUGS (15)
  1. BONIVA [Suspect]
     Indication: OSTEOPOROSIS
     Route: 042
  2. ALBUTEROL [Concomitant]
  3. AMLODIPINE [Concomitant]
  4. ASPIRIN [Concomitant]
     Route: 065
  5. ATORVASTATIN [Concomitant]
  6. BUPROPION [Concomitant]
  7. ERGOCALCIFEROL [Concomitant]
  8. FLUTICASONE [Concomitant]
  9. FUROSEMIDE [Concomitant]
  10. HYDRALAZINE [Concomitant]
  11. LORATADINE [Concomitant]
  12. OMEPRAZOLE [Concomitant]
     Route: 065
  13. PANCRELIPASE [Concomitant]
  14. PROPYLTHIOURACIL [Concomitant]
  15. IRON SULFATE [Concomitant]

REACTIONS (1)
  - Gastrointestinal haemorrhage [Recovering/Resolving]
